FAERS Safety Report 4427277-0 (Version None)
Quarter: 2004Q3

REPORT INFORMATION
  Report Type: 
  Country: None (occurrence: None)
  Receive Date: 20040813
  Receipt Date: 20040813
  Transmission Date: 20050211
  Serious: Yes (Hospitalization)
  Sender: FDA-Public Use
  Company Number: None

PATIENT
  Age: 60 Year
  Sex: Female
  Weight: 39.0093 kg

DRUGS (11)
  1. DOCETAXEL 20 MG/M2 AVENTIS [Suspect]
     Indication: NON-SMALL CELL LUNG CANCER
     Dosage: 29 MG Q WK X 7 IV
     Route: 042
     Dates: start: 20040707, end: 20040728
  2. CARBOPLATIN [Suspect]
     Indication: NON-SMALL CELL LUNG CANCER
     Dosage: 170 MG Q WK X 7 IV
     Route: 042
     Dates: start: 20040707, end: 20040728
  3. MORPHINE [Concomitant]
  4. ZANTAC [Concomitant]
  5. LORTAB [Concomitant]
  6. DIGOXIN [Concomitant]
  7. DILTIAZEM [Concomitant]
  8. WARFARIN SODIUM [Concomitant]
  9. ATROVENT [Concomitant]
  10. ALBUTEROL [Concomitant]
  11. AHA [Concomitant]

REACTIONS (2)
  - DYSPHAGIA [None]
  - WEIGHT DECREASED [None]
